FAERS Safety Report 5358904-1 (Version None)
Quarter: 2007Q2

REPORT INFORMATION
  Report Type: 
  Country: None (occurrence: None)
  Receive Date: 20070615
  Receipt Date: 20070606
  Transmission Date: 20071010
  Serious: Yes (Hospitalization)
  Sender: FDA-Public Use
  Company Number: B0458302A

PATIENT
  Age: 75 Year
  Sex: Female
  Weight: 63 kg

DRUGS (4)
  1. ROPINIROLE HCL [Suspect]
     Indication: PARKINSON'S DISEASE
     Route: 048
     Dates: start: 20070125, end: 20070205
  2. PLENDIL [Concomitant]
     Indication: HYPERTENSION
     Dosage: 5MG FOUR TIMES PER DAY
     Route: 048
  3. VASERETIC [Concomitant]
     Indication: HYPERTENSION
     Route: 048
  4. GLUCONORM [Concomitant]
     Route: 048

REACTIONS (8)
  - COORDINATION ABNORMAL [None]
  - DIZZINESS [None]
  - DROP ATTACKS [None]
  - HYPOAESTHESIA [None]
  - HYPOTENSION [None]
  - MUSCULAR WEAKNESS [None]
  - TRANSIENT ISCHAEMIC ATTACK [None]
  - VERTIGO [None]
